FAERS Safety Report 5402528-4 (Version None)
Quarter: 2007Q3

REPORT INFORMATION
  Report Type: 
  Country: None (occurrence: None)
  Receive Date: 20070730
  Receipt Date: 20070720
  Transmission Date: 20080115
  Serious: Yes (Life-Threatening, Hospitalization, Other)
  Sender: FDA-Public Use
  Company Number: 07H-163-0312911-00

PATIENT
  Age: 50 Year
  Sex: Female
  Weight: 74.5 kg

DRUGS (1)
  1. VANCOMYCIN INJECTION (VANCOMYCIN HYDROCHLORIDE) (VANCOMYCIN HYDROCHLOR [Suspect]
     Indication: CATHETER RELATED INFECTION
     Dosage: 1 GM, ONCE, INTRAVENOUS
     Route: 042
     Dates: start: 20070709, end: 20070709

REACTIONS (1)
  - HYPERSENSITIVITY [None]
